FAERS Safety Report 14223970 (Version 1)
Quarter: 2017Q4

REPORT INFORMATION
  Report Type: Spontaneous
  Country: US (occurrence: US)
  Receive Date: 20171122
  Receipt Date: 20171122
  Transmission Date: 20180321
  Serious: Yes (Disabling, Other)
  Sender: FDA-Public Use
  Company Number: None

PATIENT
  Sex: Male
  Weight: 60.75 kg

DRUGS (1)
  1. CORTIZONE 10 INTENSIVE HEALING [Suspect]
     Active Substance: HYDROCORTISONE

REACTIONS (7)
  - Dermatitis atopic [None]
  - Pain of skin [None]
  - Impaired work ability [None]
  - Condition aggravated [None]
  - Erythema [None]
  - Skin irritation [None]
  - Impaired healing [None]
